FAERS Safety Report 16540983 (Version 1)
Quarter: 2019Q3

REPORT INFORMATION
  Report Type: Spontaneous
  Country: US (occurrence: US)
  Receive Date: 20190708
  Receipt Date: 20190708
  Transmission Date: 20191004
  Serious: No
  Sender: FDA-Public Use
  Company Number: US-CURIUM PHARMACEUTICALS-200500211

PATIENT
  Age: 21 Year
  Sex: Female

DRUGS (2)
  1. ULTRA-TECHNEKOW DTE [Suspect]
     Active Substance: TECHNETIUM TC-99M SODIUM PERTECHNETATE
     Dosage: NUMBER OF SEPARATE DOSAGES: 1
     Route: 042
  2. CHOLETEC [Suspect]
     Active Substance: TECHNETIUM TC-99M MEBROFENIN
     Dosage: NUMBER OF SEPARATE DOSAGES: 1
     Route: 042

REACTIONS (5)
  - Asthenia [Not Recovered/Not Resolved]
  - Influenza like illness [Not Recovered/Not Resolved]
  - Fatigue [Not Recovered/Not Resolved]
  - Vomiting [Not Recovered/Not Resolved]
  - Nausea [Not Recovered/Not Resolved]
